FAERS Safety Report 11106241 (Version 1)
Quarter: 2015Q2

REPORT INFORMATION
  Report Type: Spontaneous
  Country: CO (occurrence: CO)
  Receive Date: 20150512
  Receipt Date: 20150512
  Transmission Date: 20150821
  Serious: Yes (Death)
  Sender: FDA-Public Use
  Company Number: CO-JNJFOC-20150506306

PATIENT
  Age: 73 Year
  Sex: Female
  Weight: 75 kg

DRUGS (1)
  1. REMICADE [Suspect]
     Active Substance: INFLIXIMAB
     Indication: RHEUMATOID ARTHRITIS
     Route: 042
     Dates: start: 20120915

REACTIONS (5)
  - Hypertension [Fatal]
  - Poisoning [Fatal]
  - Diarrhoea [Fatal]
  - Vomiting [Fatal]
  - Infection [Fatal]

NARRATIVE: CASE EVENT DATE: 20141014
